FAERS Safety Report 6595319-2 (Version None)
Quarter: 2010Q1

REPORT INFORMATION
  Report Type: 
  Country: None (occurrence: None)
  Receive Date: 20100219
  Receipt Date: 20100219
  Transmission Date: 20100710
  Serious: Yes (Hospitalization)
  Sender: FDA-Public Use
  Company Number: None

PATIENT
  Sex: Female

DRUGS (1)
  1. LEVAQUIN [Suspect]
     Indication: BRONCHIECTASIS
     Dosage: 750MG ONCE DAILY PO
     Route: 048
     Dates: start: 20100112, end: 20100112

REACTIONS (6)
  - ERYTHEMA [None]
  - HYPOTENSION [None]
  - LIP SWELLING [None]
  - PRESYNCOPE [None]
  - SOMNOLENCE [None]
  - SWELLING FACE [None]
